FAERS Safety Report 18115850 (Version 1)
Quarter: 2020Q3

REPORT INFORMATION
  Report Type: Spontaneous
  Country: GB (occurrence: GB)
  Receive Date: 20200805
  Receipt Date: 20200805
  Transmission Date: 20201103
  Serious: Yes (Other)
  Sender: FDA-Public Use
  Company Number: GB-MYLANLABS-2020M1068800

PATIENT
  Age: 67 Year
  Sex: Male
  Weight: 116 kg

DRUGS (2)
  1. TADALAFIL. [Suspect]
     Active Substance: TADALAFIL
     Indication: PRODUCT USED FOR UNKNOWN INDICATION
     Dosage: 10 MILLIGRAM (USE AS DIRECTED)
     Dates: start: 20200703
  2. ATORVASTATIN [Concomitant]
     Active Substance: ATORVASTATIN
     Dosage: BT + BP REVIEW OCTOBER ON THIS
     Dates: start: 20200714

REACTIONS (2)
  - Headache [Recovered/Resolved]
  - Hyperhidrosis [Recovered/Resolved]

NARRATIVE: CASE EVENT DATE: 20200703
